FAERS Safety Report 6744222-3 (Version None)
Quarter: 2010Q2

REPORT INFORMATION
  Report Type: 
  Country: None (occurrence: None)
  Receive Date: 20100527
  Receipt Date: 20100427
  Transmission Date: 20101027
  Serious: Yes (Life-Threatening)
  Sender: FDA-Public Use
  Company Number: JP-JNJFOC-20100408098

PATIENT
  Sex: Male

DRUGS (8)
  1. DORIPENEM MONOHYDRATE [Suspect]
     Indication: SEPSIS
     Route: 042
  2. VITAMEDIN [Concomitant]
     Route: 041
  3. MAXIPIME [Concomitant]
     Route: 041
  4. POLARAMINE [Concomitant]
     Route: 042
  5. AMIKACIN SULFATE [Concomitant]
     Route: 041
  6. HORIZON [Concomitant]
     Route: 042
  7. NEUTROGIN [Concomitant]
     Route: 058
  8. FAMOTIDINE [Concomitant]
     Route: 048

REACTIONS (2)
  - CONVULSION [None]
  - HYPONATRAEMIA [None]
